APPROVED DRUG PRODUCT: PHENYLBUTAZONE
Active Ingredient: PHENYLBUTAZONE
Strength: 100MG
Dosage Form/Route: TABLET;ORAL
Application: A084339 | Product #001
Applicant: FOSUN PHARMA USA INC
Approved: Approved Prior to Jan 1, 1982 | RLD: No | RS: No | Type: DISCN